FAERS Safety Report 6746691-1 (Version None)
Quarter: 2010Q2

REPORT INFORMATION
  Report Type: 
  Country: None (occurrence: None)
  Receive Date: 20100528
  Receipt Date: 20100519
  Transmission Date: 20101027
  Serious: Yes (Hospitalization)
  Sender: FDA-Public Use
  Company Number: NL-AMGEN-QUU410934

PATIENT
  Sex: Male
  Weight: 77 kg

DRUGS (5)
  1. NEULASTA [Suspect]
     Indication: CHEMOTHERAPY
     Route: 058
     Dates: start: 20100416, end: 20100416
  2. UNSPECIFIED ANTINEOPLASTIC AGENT [Concomitant]
  3. LORAZEPAM [Concomitant]
     Route: 048
     Dates: start: 20100414
  4. DEXAMETHASONE [Concomitant]
     Route: 048
     Dates: start: 20100414, end: 20100415
  5. ESOMEPRAZOLE MAGNESIUM [Concomitant]
     Route: 048
     Dates: start: 20100414

REACTIONS (2)
  - ARTHRALGIA [None]
  - CHEST PAIN [None]
